FAERS Safety Report 7209428-8 (Version None)
Quarter: 2011Q1

REPORT INFORMATION
  Report Type: 
  Country: None (occurrence: None)
  Receive Date: 20110104
  Receipt Date: 20101014
  Transmission Date: 20110831
  Serious: Yes (Hospitalization)
  Sender: FDA-Public Use
  Company Number: US-BAYER-201013969NA

PATIENT
  Sex: Female
  Weight: 52.273 kg

DRUGS (10)
  1. YAZ [Suspect]
     Indication: PRODUCT USED FOR UNKNOWN INDICATION
     Route: 048
  2. YASMIN [Suspect]
     Indication: MUSCULOSKELETAL DISORDER
     Route: 048
     Dates: start: 20050101, end: 20070101
  3. ALBUTEROL INHALER [Concomitant]
     Dates: start: 20020101
  4. IMITREX [Concomitant]
     Dates: start: 20051201
  5. UNCODEABLE ^UNCLASSIFIABLE^ [Concomitant]
     Dates: start: 20051201
  6. CLARITIN [Concomitant]
     Indication: MULTIPLE ALLERGIES
     Dates: start: 20000101, end: 20100101
  7. NSAID'S [Concomitant]
     Dates: start: 20000101
  8. VALIUM [Concomitant]
     Indication: ANXIETY
     Dates: start: 20070101, end: 20100101
  9. SINGULAIR [Concomitant]
     Dates: start: 20020101
  10. LORTAB [Concomitant]
     Indication: MUSCULOSKELETAL DISORDER
     Dates: start: 20060101, end: 20100101

REACTIONS (1)
  - PULMONARY EMBOLISM [None]
